FAERS Safety Report 20414271 (Version 3)
Quarter: 2022Q2

REPORT INFORMATION
  Report Type: Spontaneous
  Country: US (occurrence: US)
  Receive Date: 20220202
  Receipt Date: 20220412
  Transmission Date: 20220721
  Serious: Yes (Hospitalization, Other)
  Sender: FDA-Public Use
  Company Number: US-ELI_LILLY_AND_COMPANY-US202201008671

PATIENT
  Age: 60 Year
  Sex: Female
  Weight: 52.7 kg

DRUGS (3)
  1. BARICITINIB [Suspect]
     Active Substance: BARICITINIB
     Indication: COVID-19
     Dosage: 2 MG, DAILY
     Route: 048
     Dates: start: 20220114, end: 20220116
  2. ELIQUIS [Concomitant]
     Active Substance: APIXABAN
     Indication: Anticoagulant therapy
     Dosage: 2.5 MG, BID
     Route: 065
     Dates: end: 20220120
  3. ELIQUIS [Concomitant]
     Active Substance: APIXABAN
     Dosage: 5 MG, BID
     Route: 065
     Dates: start: 20220120

REACTIONS (6)
  - Thrombotic cerebral infarction [Unknown]
  - Pulmonary hypertension [Unknown]
  - Fibrin D dimer increased [Unknown]
  - Cerebral artery thrombosis [Not Recovered/Not Resolved]
  - Cerebral artery thrombosis [Not Recovered/Not Resolved]
  - Platelet count increased [Unknown]

NARRATIVE: CASE EVENT DATE: 20220116
